FAERS Safety Report 23686009 (Version 1)
Quarter: 2024Q1

REPORT INFORMATION
  Report Type: Spontaneous
  Country: FR (occurrence: FR)
  Receive Date: 20240329
  Receipt Date: 20240329
  Transmission Date: 20240410
  Serious: Yes (Hospitalization)
  Sender: FDA-Public Use
  Company Number: None

PATIENT
  Age: 75 Year
  Sex: Male
  Weight: 61 kg

DRUGS (2)
  1. AZACTAM [Suspect]
     Active Substance: AZTREONAM
     Indication: Urinary tract infection
     Route: 042
     Dates: start: 20240215, end: 20240229
  2. LYRICA [Suspect]
     Active Substance: PREGABALIN
     Indication: Pain
     Route: 048
     Dates: end: 20240228

REACTIONS (2)
  - Dyskinesia [Recovering/Resolving]
  - Confusional state [Recovering/Resolving]

NARRATIVE: CASE EVENT DATE: 20240219
